FAERS Safety Report 19926071 (Version 6)
Quarter: 2022Q3

REPORT INFORMATION
  Report Type: Report from Study
  Country: US (occurrence: US)
  Receive Date: 20211006
  Receipt Date: 20220712
  Transmission Date: 20221027
  Serious: Yes (Other)
  Sender: FDA-Public Use
  Company Number: US-TAKEDA-2021TUS061225

PATIENT
  Age: 64 Year
  Sex: Male

DRUGS (2)
  1. HEMOFIL [Suspect]
     Active Substance: ANTIHEMOPHILIC FACTOR HUMAN
     Indication: Product used for unknown indication
     Dosage: 1840 INTERNATIONAL UNIT
     Route: 042
  2. HEMOFIL [Suspect]
     Active Substance: ANTIHEMOPHILIC FACTOR HUMAN
     Dosage: 2000 INTERNATIONAL UNIT
     Route: 042

REACTIONS (9)
  - Vein rupture [Unknown]
  - Cataract [Unknown]
  - Haemarthrosis [Recovered/Resolved]
  - Tachycardia [Unknown]
  - Dehydration [Unknown]
  - Dry skin [Unknown]
  - Infusion site extravasation [Unknown]
  - Vitamin D decreased [Unknown]
  - Joint injury [Recovered/Resolved]

NARRATIVE: CASE EVENT DATE: 20220211
